FAERS Safety Report 23526891 (Version 2)
Quarter: 2024Q1

REPORT INFORMATION
  Report Type: Spontaneous
  Country: US (occurrence: US)
  Receive Date: 20240215
  Receipt Date: 20240228
  Transmission Date: 20240410
  Serious: No
  Sender: FDA-Public Use
  Company Number: US-ABBVIE-5627948

PATIENT
  Age: 43 Year
  Sex: Female
  Weight: 71 kg

DRUGS (1)
  1. HUMIRA [Suspect]
     Active Substance: ADALIMUMAB
     Indication: Product used for unknown indication
     Route: 058

REACTIONS (14)
  - Urticaria [Unknown]
  - Muscular weakness [Not Recovered/Not Resolved]
  - Intervertebral disc degeneration [Unknown]
  - Hypoaesthesia [Unknown]
  - Back pain [Unknown]
  - Drug hypersensitivity [Unknown]
  - Osteoarthritis [Unknown]
  - Bone density decreased [Unknown]
  - Inflammation [Not Recovered/Not Resolved]
  - Rheumatoid arthritis [Unknown]
  - Arthritis [Unknown]
  - Paraesthesia [Unknown]
  - Skin abrasion [Unknown]
  - Pain [Unknown]

NARRATIVE: CASE EVENT DATE: 20220801
